FAERS Safety Report 5299810-0 (Version None)
Quarter: 2007Q2

REPORT INFORMATION
  Report Type: 
  Country: None (occurrence: None)
  Receive Date: 20070417
  Receipt Date: 20070405
  Transmission Date: 20071010
  Serious: Yes (Hospitalization)
  Sender: FDA-Public Use
  Company Number: JP-PFIZER INC-2007027600

PATIENT
  Age: 79 Year
  Sex: Female

DRUGS (2)
  1. CABASER [Suspect]
     Indication: PARKINSON'S DISEASE
     Route: 048
     Dates: start: 20040201, end: 20070101
  2. NEODOPASOL [Concomitant]
     Route: 048

REACTIONS (2)
  - DELUSION [None]
  - HALLUCINATION [None]
